FAERS Safety Report 6024828-X (Version None)
Quarter: 2008Q4

REPORT INFORMATION
  Report Type: 
  Country: None (occurrence: None)
  Receive Date: 20081230
  Receipt Date: 20081230
  Transmission Date: 20090506
  Serious: No
  Sender: FDA-Public Use
  Company Number: None

PATIENT
  Age: 69 Year
  Sex: Female
  Weight: 78.0187 kg

DRUGS (1)
  1. ACTONEL [Suspect]
     Indication: BONE DENSITY DECREASED
     Dosage: 1 TABLET ONCE A MONTH PO
     Route: 048
     Dates: start: 20081221, end: 20081221

REACTIONS (9)
  - BACK PAIN [None]
  - CHEST DISCOMFORT [None]
  - CHEST PAIN [None]
  - IMPAIRED WORK ABILITY [None]
  - MYOSITIS [None]
  - NEURITIS [None]
  - PAIN IN EXTREMITY [None]
  - PULMONARY OEDEMA [None]
  - REACTION TO DRUG EXCIPIENTS [None]
